FAERS Safety Report 14016002 (Version 1)
Quarter: 2017Q3

REPORT INFORMATION
  Report Type: Spontaneous
  Country: US (occurrence: US)
  Receive Date: 20170927
  Receipt Date: 20170927
  Transmission Date: 20171128
  Serious: No
  Sender: FDA-Public Use
  Company Number: US-DEPOMED, INC.-US-2017DEP000960

PATIENT

DRUGS (3)
  1. GRALISE [Suspect]
     Active Substance: GABAPENTIN
     Indication: GLOSSOPHARYNGEAL NEURALGIA
     Dosage: 2400 MG, QD
     Route: 048
     Dates: start: 2014
  2. GRALISE [Suspect]
     Active Substance: GABAPENTIN
     Indication: OROPHARYNGEAL PAIN
     Dosage: 1200 MG, QD
     Route: 048
     Dates: start: 201704
  3. GABAPENTIN. [Concomitant]
     Active Substance: GABAPENTIN
     Indication: OROPHARYNGEAL PAIN
     Dosage: 1200 MG, QD
     Route: 048

REACTIONS (3)
  - Overdose [Recovered/Resolved]
  - Oropharyngeal pain [Unknown]
  - Product use in unapproved indication [Unknown]

NARRATIVE: CASE EVENT DATE: 2014
